FAERS Safety Report 7235761-X (Version None)
Quarter: 2011Q1

REPORT INFORMATION
  Report Type: 
  Country: None (occurrence: None)
  Receive Date: 20110110
  Receipt Date: 20101227
  Transmission Date: 20110831
  Serious: Yes (Other)
  Sender: FDA-Public Use
  Company Number: DSA_44349_2010

PATIENT
  Sex: Female

DRUGS (6)
  1. VOXRA (VOXRA-BUPROPION HYDROCHLORIDE) (NOT SPECIFIED) [Suspect]
     Indication: DEPRESSION
     Dosage: 150 MG QD, 300 MG DAILY
     Dates: start: 20100315, end: 20100411
  2. VOXRA (VOXRA-BUPROPION HYDROCHLORIDE) (NOT SPECIFIED) [Suspect]
     Indication: DEPRESSION
     Dosage: 150 MG QD, 300 MG DAILY
     Dates: start: 20100412
  3. SERTRALINE HYDROCHLORIDE [Suspect]
     Indication: PRODUCT USED FOR UNKNOWN INDICATION
     Dosage: DF
  4. PROPRANOLOL HYDROCHLORIDE [Concomitant]
  5. SUMATRIPTAN [Concomitant]
  6. PARAFLEX COMP [Concomitant]

REACTIONS (3)
  - CONTUSION [None]
  - BLEEDING TIME PROLONGED [None]
  - ECCHYMOSIS [None]
